FAERS Safety Report 8993189 (Version 2)
Quarter: 2013Q1

REPORT INFORMATION
  Report Type: Spontaneous
  Country: JP (occurrence: JP)
  Receive Date: 20130102
  Receipt Date: 20130121
  Transmission Date: 20140127
  Serious: Yes (Hospitalization, Other)
  Sender: FDA-Public Use
  Company Number: JP-JNJFOC-20121211469

PATIENT
  Sex: 0

DRUGS (1)
  1. TRAMCET [Suspect]
     Indication: PRODUCT USED FOR UNKNOWN INDICATION
     Route: 048

REACTIONS (5)
  - Overdose [Unknown]
  - Hallucination [Unknown]
  - Altered state of consciousness [Unknown]
  - Asthenia [Unknown]
  - Narcolepsy [Unknown]
